FAERS Safety Report 11077428 (Version 2)
Quarter: 2015Q2

REPORT INFORMATION
  Report Type: Spontaneous
  Country: US (occurrence: US)
  Receive Date: 20150430
  Receipt Date: 20150526
  Transmission Date: 20150821
  Serious: No
  Sender: FDA-Public Use
  Company Number: US-JNJFOC-20131107211

PATIENT
  Age: 57 Year
  Sex: Male

DRUGS (1)
  1. TYLOX [Suspect]
     Active Substance: ACETAMINOPHEN\OXYCODONE HYDROCHLORIDE
     Indication: PAIN
     Route: 065

REACTIONS (2)
  - Nausea [Unknown]
  - Drug effect decreased [Unknown]
